FAERS Safety Report 19081785 (Version 2)
Quarter: 2021Q3

REPORT INFORMATION
  Report Type: Spontaneous
  Country: US (occurrence: US)
  Receive Date: 20210401
  Receipt Date: 20210901
  Transmission Date: 20211014
  Serious: Yes (Other)
  Sender: FDA-Public Use
  Company Number: US-SA-2021SA103089

PATIENT
  Age: 72 Year
  Sex: Male

DRUGS (17)
  1. SYMBICORT [Concomitant]
     Active Substance: BUDESONIDE\FORMOTEROL FUMARATE DIHYDRATE
  2. XIIDRA [Concomitant]
     Active Substance: LIFITEGRAST
  3. CARVEDILOL. [Concomitant]
     Active Substance: CARVEDILOL
  4. RESTASIS [Concomitant]
     Active Substance: CYCLOSPORINE
  5. ROSUVASTATIN. [Concomitant]
     Active Substance: ROSUVASTATIN
  6. SYMBICORT [Concomitant]
     Active Substance: BUDESONIDE\FORMOTEROL FUMARATE DIHYDRATE
  7. TRELEGY ELLIPTA [Concomitant]
     Active Substance: FLUTICASONE FUROATE\UMECLIDINIUM BROMIDE\VILANTEROL TRIFENATATE
  8. ROSUVASTATIN. [Concomitant]
     Active Substance: ROSUVASTATIN
  9. AZELASTINE. [Concomitant]
     Active Substance: AZELASTINE HYDROCHLORIDE
     Dosage: 137?50MC
  10. GLIPIZIDE. [Concomitant]
     Active Substance: GLIPIZIDE
  11. MYRBETRIQ [Concomitant]
     Active Substance: MIRABEGRON
  12. CARVEDILOL. [Concomitant]
     Active Substance: CARVEDILOL
  13. DUPIXENT [Suspect]
     Active Substance: DUPILUMAB
     Indication: ASTHMA
  14. DUPIXENT [Suspect]
     Active Substance: DUPILUMAB
     Dosage: 300 MG, QOW
     Route: 058
     Dates: start: 20210825
  15. GLIPIZIDE. [Concomitant]
     Active Substance: GLIPIZIDE
  16. PRADAXA [Concomitant]
     Active Substance: DABIGATRAN ETEXILATE MESYLATE
  17. LEVALBUTEROL TARTRATE. [Concomitant]
     Active Substance: LEVALBUTEROL TARTRATE

REACTIONS (6)
  - Lung disorder [Unknown]
  - Increased bronchial secretion [Unknown]
  - Cardiac failure congestive [Unknown]
  - Drug ineffective [Unknown]
  - Dyspnoea [Unknown]
  - Depression [Recovering/Resolving]
